FAERS Safety Report 21898671 (Version 2)
Quarter: 2023Q1

REPORT INFORMATION
  Report Type: Spontaneous
  Country: CA (occurrence: CA)
  Receive Date: 20230123
  Receipt Date: 20230213
  Transmission Date: 20230417
  Serious: Yes (Other)
  Sender: FDA-Public Use
  Company Number: CA-AMERICAN REGENT INC-2023000143

PATIENT
  Age: 30 Year
  Sex: Female

DRUGS (1)
  1. VENOFER [Suspect]
     Active Substance: IRON SUCROSE
     Indication: Product used for unknown indication
     Dosage: 300 MILLIGRAM IN 250 ML NORMAL SALINE
     Route: 042
     Dates: start: 20220905, end: 20220905

REACTIONS (7)
  - Burning sensation [Unknown]
  - Sensation of foreign body [Unknown]
  - Throat irritation [Unknown]
  - Urticaria [Unknown]
  - Abdominal discomfort [Unknown]
  - Oedema peripheral [Unknown]
  - Incorrect product administration duration [Unknown]

NARRATIVE: CASE EVENT DATE: 20220905
